FAERS Safety Report 5786092-6 (Version None)
Quarter: 2008Q2

REPORT INFORMATION
  Report Type: 
  Country: None (occurrence: None)
  Receive Date: 20080620
  Receipt Date: 20080620
  Transmission Date: 20081010
  Serious: Yes (Other)
  Sender: FDA-Public Use
  Company Number: None

PATIENT
  Age: 44 Year
  Sex: Female
  Weight: 83.9154 kg

DRUGS (1)
  1. FENTANYL TRANSDERMAL SYSTEM [Suspect]

REACTIONS (6)
  - DRUG TOLERANCE INCREASED [None]
  - DRUG WITHDRAWAL SYNDROME [None]
  - HYPERHIDROSIS [None]
  - PHARMACEUTICAL PRODUCT COMPLAINT [None]
  - THINKING ABNORMAL [None]
  - TREMOR [None]
